FAERS Safety Report 8850855 (Version 1)
Quarter: 2012Q4

REPORT INFORMATION
  Report Type: 
  Country: US (occurrence: US)
  Receive Date: 20121019
  Receipt Date: 20121019
  Transmission Date: 20130627
  Serious: Yes (Other)
  Sender: FDA-Public Use
  Company Number: US-PFIZER INC-2012258278

PATIENT
  Age: 52 Year
  Sex: Female
  Weight: 61.68 kg

DRUGS (3)
  1. LYRICA [Suspect]
     Indication: OCCIPITAL NEURALGIA
     Dosage: 150 mg, 2x/day
     Route: 048
  2. NEURONTIN [Suspect]
     Indication: OCCIPITAL NEURALGIA
     Dosage: 600 mg, 3x/day
     Route: 048
  3. IBUPROFEN [Concomitant]
     Dosage: UNK

REACTIONS (1)
  - Occipital neuralgia [Unknown]
